FAERS Safety Report 8464578-3 (Version None)
Quarter: 2012Q2

REPORT INFORMATION
  Report Type: 
  Country: None (occurrence: None)
  Receive Date: 20120323
  Receipt Date: 20110928
  Transmission Date: 20120825
  Serious: Yes (Other)
  Sender: FDA-Public Use
  Company Number: 163-21880-11093754

PATIENT
  Age: 78 Year
  Sex: Female

DRUGS (4)
  1. PRANDIN [Concomitant]
  2. CATAPRES [Concomitant]
  3. DECADRON [Concomitant]
  4. REVLIMID [Suspect]
     Indication: MULTIPLE MYELOMA
     Dosage: 25 MG, 1 IN 1 D, PO TEMPORARILY INTERRUPTED
     Route: 048
     Dates: start: 20110401

REACTIONS (2)
  - HIP FRACTURE [None]
  - FALL [None]
